FAERS Safety Report 7688608-1 (Version None)
Quarter: 2011Q3

REPORT INFORMATION
  Report Type: 
  Country: None (occurrence: None)
  Receive Date: 20110817
  Receipt Date: 20110808
  Transmission Date: 20111222
  Serious: Yes (Hospitalization)
  Sender: FDA-Public Use
  Company Number: US-ASTRAZENECA-2011SE47486

PATIENT
  Age: 66 Year
  Sex: Male

DRUGS (8)
  1. ASPIRIN [Concomitant]
  2. SAXAGLIPTIN [Suspect]
     Indication: TYPE 2 DIABETES MELLITUS
     Dates: start: 20101227
  3. LANTUS [Suspect]
     Indication: DIABETES MELLITUS
  4. METFORMIN HCL [Suspect]
     Indication: DIABETES MELLITUS
  5. REPAGLINIDE [Suspect]
     Indication: DIABETES MELLITUS
  6. ATACAND [Suspect]
     Route: 048
  7. PLACEBO [Suspect]
     Indication: TYPE 2 DIABETES MELLITUS
     Dates: start: 20101227
  8. LOPRESSOR [Suspect]

REACTIONS (1)
  - PRESYNCOPE [None]
